FAERS Safety Report 5558113-7 (Version None)
Quarter: 2007Q4

REPORT INFORMATION
  Report Type: 
  Country: None (occurrence: None)
  Receive Date: 20071214
  Receipt Date: 20071203
  Transmission Date: 20080405
  Serious: Yes (Disabling)
  Sender: FDA-Public Use
  Company Number: HU-AMGEN-UK253749

PATIENT
  Sex: Female

DRUGS (9)
  1. PANITUMUMAB [Suspect]
     Indication: COLORECTAL CANCER
     Route: 042
     Dates: start: 20070301, end: 20070301
  2. OXALIPLATIN [Concomitant]
  3. FLUOROURACIL [Concomitant]
  4. LEUCOVORIN CALCIUM [Concomitant]
  5. TRAMADOL HCL [Concomitant]
     Route: 048
  6. MAGNESIUM [Concomitant]
     Route: 048
  7. KALIUM [Concomitant]
     Route: 048
  8. METOCLOPRAMIDE [Concomitant]
  9. ONDANSETRON [Concomitant]
     Route: 042
     Dates: start: 20070501, end: 20070506

REACTIONS (3)
  - DISEASE PROGRESSION [None]
  - GAMMA-GLUTAMYLTRANSFERASE INCREASED [None]
  - PULMONARY EMBOLISM [None]
